FAERS Safety Report 25382676 (Version 3)
Quarter: 2025Q3

REPORT INFORMATION
  Report Type: Spontaneous
  Country: CO (occurrence: CO)
  Receive Date: 20250601
  Receipt Date: 20250716
  Transmission Date: 20251021
  Serious: Yes (Other)
  Sender: BIOGEN
  Company Number: CO-BIOGEN-2025BI01305863

PATIENT
  Sex: Male
  Weight: 84 kg

DRUGS (2)
  1. TYSABRI [Suspect]
     Active Substance: NATALIZUMAB
     Indication: Relapsing-remitting multiple sclerosis
     Dosage: HAD 27 INFUSIONS OF NATALIZUMAB LAST INFUSION 12/APRIL.
     Route: 050
     Dates: start: 20220119, end: 20250522
  2. GABAPENTIN [Concomitant]
     Active Substance: GABAPENTIN
     Indication: Product used for unknown indication
     Dosage: 300 MG EVERY 24 HRS
     Route: 050

REACTIONS (1)
  - Lymphoma [Not Recovered/Not Resolved]

NARRATIVE: CASE EVENT DATE: 20250526
